FAERS Safety Report 7880300-3 (Version None)
Quarter: 2011Q4

REPORT INFORMATION
  Report Type: 
  Country: None (occurrence: None)
  Receive Date: 20111101
  Receipt Date: 20111025
  Transmission Date: 20120403
  Serious: Yes (Death, Hospitalization)
  Sender: FDA-Public Use
  Company Number: US-CELGENEUS-163-21880-11102864

PATIENT
  Age: 78 Year
  Sex: Male

DRUGS (5)
  1. TAMSULOSIN HCL [Concomitant]
     Route: 065
  2. FUROSEMIDE [Concomitant]
     Route: 065
  3. OMEPRAZOLE [Concomitant]
     Route: 065
  4. FINASTERIDE [Concomitant]
     Route: 065
  5. REVLIMID [Suspect]
     Indication: MYELOFIBROSIS
     Dosage: 10 MILLIGRAM
     Route: 048
     Dates: start: 20110308, end: 20110328

REACTIONS (6)
  - RESPIRATORY FAILURE [None]
  - CARDIAC ARREST [None]
  - DEATH [None]
  - CLOSTRIDIUM DIFFICILE COLITIS [None]
  - SEPSIS [None]
  - HYPOTENSION [None]
